FAERS Safety Report 9752617 (Version 5)
Quarter: 2014Q1

REPORT INFORMATION
  Report Type: Spontaneous
  Country: CA (occurrence: CA)
  Receive Date: 20131213
  Receipt Date: 20140128
  Transmission Date: 20141002
  Serious: Yes (Hospitalization, Other)
  Sender: FDA-Public Use
  Company Number: CA-SA-2013SA128622

PATIENT
  Age: 62 Year
  Sex: Male

DRUGS (6)
  1. CLIKSTAR [Suspect]
     Indication: DEVICE THERAPY
     Dates: start: 201308
  2. LANTUS [Suspect]
     Indication: DIABETES MELLITUS
     Dosage: DOSE:34 UNIT(S)
     Route: 058
     Dates: start: 201308
  3. NOVORAPID [Concomitant]
  4. RAMIPRIL [Concomitant]
     Indication: PROPHYLAXIS
     Route: 048
  5. LIPITOR [Concomitant]
     Route: 048
  6. BACLOFEN [Concomitant]
     Dosage: DOSE: 10 MG BID WITH 20 MG IN THE EVENING.

REACTIONS (4)
  - Diabetic ketoacidosis [Recovered/Resolved]
  - Depressed level of consciousness [Recovered/Resolved]
  - Malaise [Recovered/Resolved]
  - Hyperglycaemia [Recovered/Resolved]
